FAERS Safety Report 10130803 (Version 3)
Quarter: 2015Q1

REPORT INFORMATION
  Report Type: Other
  Country: US (occurrence: US)
  Receive Date: 20140428
  Receipt Date: 20150326
  Transmission Date: 20150720
  Serious: Yes (Death, Hospitalization, Other)
  Sender: FDA-Public Use
  Company Number: US-GSKPPD-2014GSK033864

PATIENT
  Age: 66 Year
  Sex: Female

DRUGS (3)
  1. AVANDIA [Suspect]
     Active Substance: ROSIGLITAZONE MALEATE
     Indication: DIABETES MELLITUS
     Dosage: DATES OF AVANDIA USE COULD NOT BE CONFIRMED IN RECORDS REVIEWED.
     Route: 048
  2. DIGOXIN. [Concomitant]
     Active Substance: DIGOXIN
  3. MIDODRINE [Concomitant]
     Active Substance: MIDODRINE

REACTIONS (3)
  - Cardiac failure congestive [Recovered/Resolved]
  - Cardio-respiratory arrest [Fatal]
  - Myocardial infarction [Unknown]

NARRATIVE: CASE EVENT DATE: 20110408
